FAERS Safety Report 6902848-8 (Version None)
Quarter: 2010Q3

REPORT INFORMATION
  Report Type: 
  Country: None (occurrence: None)
  Receive Date: 20100803
  Receipt Date: 20080619
  Transmission Date: 20110219
  Serious: Yes (Other)
  Sender: FDA-Public Use
  Company Number: US-PFIZER INC-2008014415

PATIENT
  Sex: Female

DRUGS (7)
  1. LYRICA [Suspect]
     Indication: TRIGEMINAL NEURALGIA
     Dates: start: 20080118, end: 20080206
  2. LYRICA [Suspect]
     Indication: FACIAL PAIN
  3. MEDROL [Suspect]
     Indication: TRIGEMINAL NEURALGIA
     Dates: start: 20080117, end: 20080125
  4. MEDROL [Suspect]
     Indication: FACIAL PAIN
  5. SYNTHROID [Concomitant]
  6. ESTRACE [Concomitant]
  7. PROVERA [Concomitant]

REACTIONS (30)
  - ANXIETY [None]
  - ASTHENIA [None]
  - BALANCE DISORDER [None]
  - CHEST DISCOMFORT [None]
  - CONFUSIONAL STATE [None]
  - DEPRESSION [None]
  - DIPLOPIA [None]
  - DRUG INEFFECTIVE [None]
  - DRY MOUTH [None]
  - DYSPNOEA [None]
  - FEELING ABNORMAL [None]
  - GAIT DISTURBANCE [None]
  - HYPERHIDROSIS [None]
  - LETHARGY [None]
  - MALAISE [None]
  - MENTAL STATUS CHANGES [None]
  - MUSCLE TWITCHING [None]
  - NEURALGIA [None]
  - NIGHTMARE [None]
  - PAIN [None]
  - PARAESTHESIA [None]
  - RASH [None]
  - SINUSITIS [None]
  - SLEEP DISORDER [None]
  - THYROID FUNCTION TEST ABNORMAL [None]
  - TREMOR [None]
  - URINARY INCONTINENCE [None]
  - VISION BLURRED [None]
  - WEIGHT INCREASED [None]
  - WITHDRAWAL SYNDROME [None]
